FAERS Safety Report 17238366 (Version 1)
Quarter: 2019Q4

REPORT INFORMATION
  Report Type: Spontaneous
  Country: US (occurrence: US)
  Receive Date: 20191211
  Receipt Date: 20191211
  Transmission Date: 20200122
  Serious: Yes (Hospitalization)
  Sender: FDA-Public Use
  Company Number: None

PATIENT
  Sex: Male

DRUGS (1)
  1. NEUPOGEN [Suspect]
     Active Substance: FILGRASTIM
     Indication: AUTOIMMUNE HAEMOLYTIC ANAEMIA
     Dosage: ?          OTHER STRENGTH:300MCG/0.5ML;OTHER FREQUENCY:DAILY-7DAYS/14;?
     Route: 058
     Dates: start: 201711

REACTIONS (1)
  - Nocardiosis [None]
